FAERS Safety Report 9532309 (Version 3)
Quarter: 2013Q4

REPORT INFORMATION
  Report Type: Report from Study
  Country: TW (occurrence: TW)
  Receive Date: 20130918
  Receipt Date: 20131003
  Transmission Date: 20140711
  Serious: Yes (Hospitalization, Other)
  Sender: FDA-Public Use
  Company Number: PHHY2012TW103833

PATIENT
  Age: 71 Year
  Sex: Female
  Weight: 50 kg

DRUGS (1)
  1. ACLASTA/ZOLEDRONATE [Suspect]
     Dosage: 5 MG
     Route: 042
     Dates: start: 20121015

REACTIONS (20)
  - Myocardial ischaemia [Recovering/Resolving]
  - Coronary artery disease [Recovering/Resolving]
  - Cardiac failure congestive [Recovering/Resolving]
  - Pleural effusion [Recovering/Resolving]
  - Orthopnoea [Recovering/Resolving]
  - Acute pulmonary oedema [Recovering/Resolving]
  - Thyroxine free increased [Recovering/Resolving]
  - Heart injury [Recovering/Resolving]
  - Acute respiratory failure [Recovering/Resolving]
  - Hypoxic-ischaemic encephalopathy [Recovering/Resolving]
  - Metabolic acidosis [Recovering/Resolving]
  - Acute myocardial infarction [Recovering/Resolving]
  - Pulseless electrical activity [Recovering/Resolving]
  - Lung infiltration [Recovering/Resolving]
  - Nervous system disorder [Recovering/Resolving]
  - Renal failure acute [Recovering/Resolving]
  - Nausea [Recovering/Resolving]
  - Discomfort [Recovering/Resolving]
  - Infection [Recovered/Resolved]
  - Pyrexia [Recovered/Resolved]
